FAERS Safety Report 6030065-5 (Version None)
Quarter: 2009Q1

REPORT INFORMATION
  Report Type: 
  Country: None (occurrence: None)
  Receive Date: 20090105
  Receipt Date: 20090105
  Transmission Date: 20090719
  Serious: Yes (Life-Threatening, Hospitalization, Other)
  Sender: FDA-Public Use
  Company Number: None

PATIENT
  Age: 70 Year
  Sex: Female
  Weight: 77.1115 kg

DRUGS (1)
  1. ALVESCO [Suspect]
     Indication: ASTHMA
     Dosage: 2 PUFFS TWICE DAY PO
     Route: 048

REACTIONS (2)
  - CHEST DISCOMFORT [None]
  - RESPIRATION ABNORMAL [None]
